FAERS Safety Report 5077039-9 (Version None)
Quarter: 2006Q3

REPORT INFORMATION
  Report Type: 
  Country: None (occurrence: None)
  Receive Date: 20060810
  Receipt Date: 20060807
  Transmission Date: 20061208
  Serious: Yes (Hospitalization)
  Sender: FDA-Public Use
  Company Number: 2006UW15673

PATIENT
  Age: 53 Year
  Sex: Female
  Weight: 59 kg

DRUGS (5)
  1. SEROQUEL [Suspect]
     Indication: BIPOLAR DISORDER
     Dosage: OFF AND ON
     Route: 048
     Dates: start: 20000101
  2. KLONOPIN [Concomitant]
  3. SYNTHROID [Concomitant]
  4. TEGRETOL [Concomitant]
  5. LITHIUM [Concomitant]

REACTIONS (2)
  - ANGER [None]
  - SELF ESTEEM DECREASED [None]
